FAERS Safety Report 15603228 (Version 1)
Quarter: 2018Q4

REPORT INFORMATION
  Report Type: Spontaneous
  Country: TR (occurrence: TR)
  Receive Date: 20181109
  Receipt Date: 20181109
  Transmission Date: 20190205
  Serious: Yes (Hospitalization)
  Sender: FDA-Public Use
  Company Number: PHHY2018TR146499

PATIENT
  Age: 11 Year
  Sex: Male

DRUGS (5)
  1. METHYLPREDNISOLONE. [Suspect]
     Active Substance: METHYLPREDNISOLONE
     Indication: NEPHROTIC SYNDROME
     Dosage: 2 MG/KG, QD
     Route: 065
  2. FUROSEMIDE. [Suspect]
     Active Substance: FUROSEMIDE
     Indication: NEPHROTIC SYNDROME
     Dosage: 1 MG/KG, QD
     Route: 065
  3. WARFARIN [Concomitant]
     Active Substance: WARFARIN
     Indication: PRODUCT USED FOR UNKNOWN INDICATION
     Dosage: UNK
     Route: 048
  4. HEPARIN [Concomitant]
     Active Substance: HEPARIN SODIUM
     Indication: PRODUCT USED FOR UNKNOWN INDICATION
     Dosage: UNK
     Route: 065
  5. ACETYLSALICYLIC ACID [Concomitant]
     Active Substance: ASPIRIN
     Indication: PRODUCT USED FOR UNKNOWN INDICATION
     Dosage: UNK
     Route: 065

REACTIONS (14)
  - Cerebral artery thrombosis [Unknown]
  - Muscular weakness [Unknown]
  - Headache [Unknown]
  - Somnolence [Unknown]
  - Product use in unapproved indication [Unknown]
  - Pupils unequal [Unknown]
  - Oedema peripheral [Unknown]
  - Renal failure [Unknown]
  - Speech disorder [Unknown]
  - Facial paralysis [Unknown]
  - Therapy non-responder [Unknown]
  - Nephrotic syndrome [Unknown]
  - Restlessness [Unknown]
  - Hemiplegia [Unknown]
